FAERS Safety Report 5816942-6 (Version None)
Quarter: 2008Q3

REPORT INFORMATION
  Report Type: 
  Country: None (occurrence: None)
  Receive Date: 20080722
  Receipt Date: 20080714
  Transmission Date: 20090109
  Serious: Yes (Other)
  Sender: FDA-Public Use
  Company Number: PHHY2008JP12111

PATIENT
  Age: 69 Year
  Sex: Male

DRUGS (6)
  1. LAMISIL [Suspect]
     Dosage: 125 MG/ DAY
     Route: 048
     Dates: start: 20080603, end: 20080618
  2. ONON [Concomitant]
     Indication: ASTHMA
     Dosage: 450 MG
     Route: 048
     Dates: start: 20050101
  3. THEOLONG [Concomitant]
     Indication: ASTHMA
     Dosage: 400 MG
     Route: 048
     Dates: start: 20050101
  4. FLUTIDE [Concomitant]
     Indication: ASTHMA
     Dosage: 200 UG
     Dates: start: 20050101
  5. INTAL [Concomitant]
  6. MUCOSOLVAN [Concomitant]
     Indication: ASTHMA
     Dosage: UNK
     Route: 048
     Dates: start: 20050101

REACTIONS (10)
  - ALANINE AMINOTRANSFERASE INCREASED [None]
  - ASPARTATE AMINOTRANSFERASE INCREASED [None]
  - C-REACTIVE PROTEIN INCREASED [None]
  - DIARRHOEA [None]
  - LIVER DISORDER [None]
  - NASOPHARYNGITIS [None]
  - PROTEIN URINE PRESENT [None]
  - PYREXIA [None]
  - VIRAL INFECTION [None]
  - VOMITING [None]
